FAERS Safety Report 15639369 (Version 2)
Quarter: 2018Q4

REPORT INFORMATION
  Report Type: Spontaneous
  Country: AT (occurrence: AT)
  Receive Date: 20181120
  Receipt Date: 20181204
  Transmission Date: 20190205
  Serious: Yes (Other)
  Sender: FDA-Public Use
  Company Number: AT-PFIZER INC-2018467460

PATIENT
  Age: 76 Year
  Sex: Female

DRUGS (4)
  1. GIOTRIF [AFATINIB] [Suspect]
     Active Substance: AFATINIB
     Indication: EGFR GENE MUTATION
     Dosage: 40 MG, 1X/DAY
     Route: 065
     Dates: start: 201410, end: 201512
  2. DENOSUMAB [Concomitant]
     Active Substance: DENOSUMAB
     Dosage: UNK
     Route: 065
  3. CARBOPLATIN. [Suspect]
     Active Substance: CARBOPLATIN
     Indication: LUNG ADENOCARCINOMA
     Dosage: UNK
     Route: 065
     Dates: start: 201309, end: 201311
  4. VINORELBINE [Suspect]
     Active Substance: VINORELBINE\VINORELBINE TARTRATE
     Indication: LUNG ADENOCARCINOMA
     Dosage: UNK
     Route: 065
     Dates: start: 201309, end: 201311

REACTIONS (9)
  - Diplopia [Recovered/Resolved]
  - Neoplasm progression [Unknown]
  - Dizziness [Recovered/Resolved]
  - EGFR gene mutation [Unknown]
  - Dyspnoea [Recovering/Resolving]
  - VIth nerve paresis [Unknown]
  - Quality of life decreased [Unknown]
  - Visual impairment [Recovered/Resolved]
  - Gait disturbance [Recovered/Resolved]

NARRATIVE: CASE EVENT DATE: 2014
